FAERS Safety Report 12033296 (Version 1)
Quarter: 2016Q1

REPORT INFORMATION
  Report Type: Report from Study
  Country: US (occurrence: US)
  Receive Date: 20160207
  Receipt Date: 20160207
  Transmission Date: 20160526
  Serious: No
  Sender: FDA-Public Use
  Company Number: US-ABBVIE-15K-163-1514375-00

PATIENT
  Age: 45 Year
  Sex: Male

DRUGS (2)
  1. HUMIRA [Suspect]
     Active Substance: ADALIMUMAB
     Indication: PSORIASIS
     Dosage: TWO PENS INJECTED, ONE TIME INITIAL DOSE
     Route: 058
     Dates: start: 201511, end: 201511
  2. HUMIRA [Suspect]
     Active Substance: ADALIMUMAB
     Indication: PSORIATIC ARTHROPATHY
     Route: 058
     Dates: start: 201511

REACTIONS (10)
  - Drug ineffective [Unknown]
  - Back pain [Unknown]
  - Arthralgia [Unknown]
  - Pruritus [Unknown]
  - Arthralgia [Unknown]
  - Pain in extremity [Unknown]
  - Pain [Unknown]
  - General physical condition abnormal [Unknown]
  - Emotional distress [Unknown]
  - Pruritus [Unknown]

NARRATIVE: CASE EVENT DATE: 201511
